FAERS Safety Report 9951965 (Version 1)
Quarter: 2014Q1

REPORT INFORMATION
  Report Type: Report from Study
  Country: US (occurrence: US)
  Receive Date: 20140304
  Receipt Date: 20140304
  Transmission Date: 20141002
  Serious: No
  Sender: FDA-Public Use
  Company Number: US-ABBVIE-13P-163-1071402-00

PATIENT
  Age: 63 Year
  Sex: Female

DRUGS (10)
  1. HUMIRA [Suspect]
     Indication: PSORIASIS
     Dates: start: 20130319, end: 20130327
  2. HUMIRA [Suspect]
     Dates: start: 20130327
  3. METFORMIN [Concomitant]
     Indication: DIABETES MELLITUS
     Dosage: 1000MG TWICE PER DAY, 500MG AT NOON
  4. JANUVIA [Concomitant]
     Indication: DIABETES MELLITUS
     Dosage: 100MG DAILY
  5. AVAPRO [Concomitant]
     Indication: HYPERTENSION
     Dosage: 300MG DAILY
  6. GENERIC NORVASC [Concomitant]
     Indication: PRODUCT USED FOR UNKNOWN INDICATION
     Dosage: 2.5 MG DAILY
  7. SYNTHROID [Concomitant]
     Indication: PRODUCT USED FOR UNKNOWN INDICATION
     Dosage: .75MCG DAILY, SUNDAY THRU FRIDAY
  8. PRAVASTATIN [Concomitant]
     Indication: BLOOD CHOLESTEROL
     Dosage: AT BEDTIME
  9. VITAMIN B12 [Concomitant]
     Indication: RED BLOOD CELL COUNT ABNORMAL
  10. CLOBETASOL [Concomitant]
     Indication: PSORIASIS
     Route: 061

REACTIONS (2)
  - Fatigue [Recovered/Resolved]
  - Inappropriate schedule of drug administration [Unknown]
